FAERS Safety Report 7290180-5 (Version None)
Quarter: 2011Q1

REPORT INFORMATION
  Report Type: 
  Country: None (occurrence: None)
  Receive Date: 20110214
  Receipt Date: 20110201
  Transmission Date: 20110831
  Serious: Yes (Hospitalization)
  Sender: FDA-Public Use
  Company Number: PHHY2011FR09003

PATIENT
  Sex: Male

DRUGS (3)
  1. LAMISIL [Suspect]
     Dosage: 250 MG, QD
     Dates: start: 20101217, end: 20101229
  2. ATROVENT [Concomitant]
     Dosage: UNK
  3. SERETIDE [Concomitant]
     Dosage: UNK

REACTIONS (5)
  - CHILLS [None]
  - ACUTE FEBRILE NEUTROPHILIC DERMATOSIS [None]
  - PYREXIA [None]
  - RASH [None]
  - ASTHENIA [None]
